FAERS Safety Report 5843226-2 (Version None)
Quarter: 2008Q3

REPORT INFORMATION
  Report Type: 
  Country: None (occurrence: None)
  Receive Date: 20080813
  Receipt Date: 20080806
  Transmission Date: 20090109
  Serious: Yes (Death)
  Sender: FDA-Public Use
  Company Number: PHHY2008GB17012

PATIENT

DRUGS (1)
  1. SANDOSTATIN [Suspect]
     Indication: INTESTINAL FUNCTIONAL DISORDER

REACTIONS (1)
  - DEATH [None]
